FAERS Safety Report 19866385 (Version 1)
Quarter: 2021Q3

REPORT INFORMATION
  Report Type: Spontaneous
  Country: CA (occurrence: CA)
  Receive Date: 20210921
  Receipt Date: 20210921
  Transmission Date: 20211014
  Serious: Yes (Other)
  Sender: FDA-Public Use
  Company Number: CA-PFIZER INC-202101182946

PATIENT
  Age: 22 Year
  Sex: Male

DRUGS (2)
  1. XYNTHA [Suspect]
     Active Substance: ANTIHEMOPHILIC FACTOR, HUMAN RECOMBINANT RESIDUES 743-1636 DELETED
     Indication: FACTOR VIII DEFICIENCY
     Dosage: 4500 IU
     Route: 042
     Dates: start: 20210828
  2. XYNTHA [Suspect]
     Active Substance: ANTIHEMOPHILIC FACTOR, HUMAN RECOMBINANT RESIDUES 743-1636 DELETED
     Dosage: 4500 IU (ADMINISTERED ONLY 2/3 OF THE FULL DOSE (4500 U)
     Route: 042
     Dates: start: 20210908

REACTIONS (3)
  - Vein rupture [Unknown]
  - Incorrect dose administered [Unknown]
  - Poor venous access [Unknown]

NARRATIVE: CASE EVENT DATE: 20210908
